FAERS Safety Report 24877330 (Version 1)
Quarter: 2025Q1

REPORT INFORMATION
  Report Type: Spontaneous
  Country: JP (occurrence: None)
  Receive Date: 20250123
  Receipt Date: 20250123
  Transmission Date: 20250408
  Serious: Yes (Other)
  Sender: ADIENNE PHARMA & BIOTECH
  Company Number: JP-ADIENNEP-2025AD000033

PATIENT
  Sex: Female

DRUGS (2)
  1. THIOTEPA [Suspect]
     Active Substance: THIOTEPA
     Indication: Autologous haematopoietic stem cell transplant
  2. BUSULFAN [Suspect]
     Active Substance: BUSULFAN
     Indication: Autologous haematopoietic stem cell transplant

REACTIONS (3)
  - Graft versus host disease in gastrointestinal tract [Recovered/Resolved]
  - Cytomegalovirus enterocolitis [Recovered/Resolved]
  - Neutropenic colitis [Recovered/Resolved]
